FAERS Safety Report 5197968-5 (Version None)
Quarter: 2006Q4

REPORT INFORMATION
  Report Type: 
  Country: None (occurrence: None)
  Receive Date: 20061228
  Receipt Date: 20061222
  Transmission Date: 20070319
  Serious: Yes (Other)
  Sender: FDA-Public Use
  Company Number: 229089

PATIENT
  Age: 90 Year
  Sex: Male

DRUGS (14)
  1. AVASTIN [Suspect]
     Indication: MACULAR DEGENERATION
     Dosage: 1.25 MG, UNK, INTRAVITREAL
     Dates: start: 20060405, end: 20060526
  2. LUCENTIS [Suspect]
     Indication: DRUG USE FOR UNKNOWN INDICATION
     Dates: start: 20060825, end: 20061206
  3. ASPIRIN [Concomitant]
  4. ISORDIL [Concomitant]
  5. HYDROCHLOROTHIAZIDE [Concomitant]
  6. OMEPRAZOLE [Concomitant]
  7. AMLODIPINE BESYLATE [Concomitant]
  8. ZOCOR [Concomitant]
  9. POTASSIUM (POTASSIUM NOS) [Concomitant]
  10. LISINOPRIL [Concomitant]
  11. CLOPIDOGREL [Concomitant]
  12. ATENOL (ATENOLOL) [Concomitant]
  13. FORADIL [Concomitant]
  14. TIMOLOL (TIMOLOL MALEATE) [Concomitant]

REACTIONS (2)
  - RETINAL ISCHAEMIA [None]
  - RETINAL VEIN OCCLUSION [None]
